FAERS Safety Report 19225727 (Version 1)
Quarter: 2021Q2

REPORT INFORMATION
  Report Type: Spontaneous
  Country: US (occurrence: US)
  Receive Date: 20210505
  Receipt Date: 20210505
  Transmission Date: 20210717
  Serious: Yes (Hospitalization, Other)
  Sender: FDA-Public Use
  Company Number: US-LUPIN PHARMACEUTICALS INC.-2021-06082

PATIENT
  Age: 71 Year
  Sex: Female

DRUGS (2)
  1. CALCIUM ACETATE. [Suspect]
     Active Substance: CALCIUM ACETATE
     Indication: ACCIDENTAL OVERDOSE
     Dosage: UNK UNK, QD, (EVERY DAY FOR TWO WEEKS)
     Route: 048
  2. TUMS [Suspect]
     Active Substance: CALCIUM CARBONATE
     Indication: ACCIDENTAL OVERDOSE
     Dosage: UNKNOWN, 6 TABLETS EVERY DAY FOR TWO WEEKS
     Route: 048

REACTIONS (4)
  - Milk-alkali syndrome [Recovering/Resolving]
  - Accidental overdose [Unknown]
  - Product administration error [Unknown]
  - Hypercalcaemia [Recovered/Resolved]
